FAERS Safety Report 18148469 (Version 17)
Quarter: 2024Q1

REPORT INFORMATION
  Report Type: Report from Study
  Country: CA (occurrence: CA)
  Receive Date: 20200814
  Receipt Date: 20240203
  Transmission Date: 20240410
  Serious: Yes (Disabling, Other)
  Sender: FDA-Public Use
  Company Number: CA-KOREA IPSEN PHARMA-2020-07462

PATIENT
  Age: 64 Year
  Sex: Female
  Weight: 54 kg

DRUGS (15)
  1. LANREOTIDE ACETATE [Suspect]
     Active Substance: LANREOTIDE ACETATE
     Indication: Gastroenteropancreatic neuroendocrine tumour disease
     Dosage: 120MG EVERY 28 DAYS/4 WEEKS
     Route: 058
     Dates: start: 20200320, end: 20201223
  2. LANREOTIDE ACETATE [Suspect]
     Active Substance: LANREOTIDE ACETATE
     Indication: Metastases to liver
     Dosage: 120MG
     Route: 058
     Dates: start: 20220223, end: 2022
  3. ELIQUIS [Concomitant]
     Active Substance: APIXABAN
     Indication: Cardiomyopathy
     Route: 048
     Dates: start: 2014
  4. LORAZEPAM [Concomitant]
     Active Substance: LORAZEPAM
     Dosage: AT NIGHT, TAKE 1 TO 2 TABLETS ONCE PER DAY AS NEEDED (DO NOT TAKE AT THE SAME TIME AS 2MG)
     Route: 048
  5. VITAMIN D [Concomitant]
     Active Substance: VITAMIN D NOS
     Route: 048
  6. ATIVAN [Concomitant]
     Active Substance: LORAZEPAM
     Dosage: AS NEEDED
  7. CREON [Concomitant]
     Active Substance: PANCRELIPASE AMYLASE\PANCRELIPASE LIPASE\PANCRELIPASE PROTEASE
  8. COTAZYM ECS [Concomitant]
     Indication: Diarrhoea
     Dosage: TAKE 1 TO 3 TABLETS WITH EACH MEAL (INCREASE PROGRESSIVELY ACCORDING TO SYMPTOMS OF DIARRHEA)
  9. ACETAMINOPHEN [Concomitant]
     Active Substance: ACETAMINOPHEN
     Indication: Pain
     Dosage: 325 MG TAKE 2 TABLETS EVERY 4 TO 6 HOURS AS NEEDED
  10. ACETAMINOPHEN [Concomitant]
     Active Substance: ACETAMINOPHEN
     Indication: Pyrexia
  11. CHOLECALCIFEROL [Concomitant]
     Active Substance: CHOLECALCIFEROL
     Dosage: 10,000 UI TAKE 1 TABLET ONCE WEEKLY REGULARLY WITH A MEAL
  12. CHOLESTYRAMINE [Concomitant]
     Active Substance: CHOLESTYRAMINE
     Indication: Diarrhoea
     Dosage: OLESTYR WITHOUT SUGAR 4G SACHET POWDER TAKE 1 SACHET OF 4G ONCE PER DAY
  13. CALCIUM [Concomitant]
     Active Substance: CALCIUM
     Indication: Osteoporosis
     Dosage: 500MG TABLET TAKE 1 TABLET ONCE PER DAY WITH BREAKFAST
  14. TYLENOL [Concomitant]
     Active Substance: ACETAMINOPHEN
  15. PREGABALIN [Concomitant]
     Active Substance: PREGABALIN

REACTIONS (36)
  - Diarrhoea [Recovered/Resolved]
  - Fatigue [Recovered/Resolved]
  - Disease progression [Unknown]
  - Depression [Not Recovered/Not Resolved]
  - Wrist fracture [Not Recovered/Not Resolved]
  - Fall [Unknown]
  - Constipation [Recovered/Resolved]
  - Abdominal pain upper [Not Recovered/Not Resolved]
  - Headache [Not Recovered/Not Resolved]
  - Diarrhoea [Recovered/Resolved]
  - Back pain [Not Recovered/Not Resolved]
  - Dizziness [Recovered/Resolved]
  - Nausea [Not Recovered/Not Resolved]
  - Neoplasm progression [Not Recovered/Not Resolved]
  - Abdominal pain [Recovered/Resolved]
  - Flatulence [Recovered/Resolved]
  - Nausea [Recovered/Resolved]
  - Vomiting [Recovered/Resolved]
  - Asthenia [Recovered/Resolved]
  - Abdominal pain [Recovering/Resolving]
  - Decreased appetite [Recovering/Resolving]
  - Alopecia [Recovered/Resolved]
  - Alopecia [Not Recovered/Not Resolved]
  - Joint ankylosis [Not Recovered/Not Resolved]
  - Musculoskeletal stiffness [Not Recovered/Not Resolved]
  - Depressed mood [Unknown]
  - Hot flush [Not Recovered/Not Resolved]
  - Asthenia [Not Recovered/Not Resolved]
  - Constipation [Not Recovered/Not Resolved]
  - Diarrhoea [Not Recovered/Not Resolved]
  - Fatigue [Not Recovered/Not Resolved]
  - Diarrhoea [Not Recovered/Not Resolved]
  - Back pain [Not Recovered/Not Resolved]
  - Off label use [Unknown]
  - Treatment noncompliance [Unknown]
  - Adverse drug reaction [Unknown]

NARRATIVE: CASE EVENT DATE: 20200101
